FAERS Safety Report 23850686 (Version 1)
Quarter: 2024Q2

REPORT INFORMATION
  Report Type: Report from Study
  Country: US (occurrence: US)
  Receive Date: 20240513
  Receipt Date: 20240513
  Transmission Date: 20240716
  Serious: Yes (Hospitalization, Other)
  Sender: FDA-Public Use
  Company Number: US-ABBVIE-5738921

PATIENT
  Age: 67 Year
  Sex: Female
  Weight: 66 kg

DRUGS (6)
  1. HUMIRA [Suspect]
     Active Substance: ADALIMUMAB
     Indication: Uveitis
     Dosage: FORM STRENGTH: 40 MILLIGRAM ?CITRATE FREE
     Route: 058
     Dates: start: 20210825, end: 202404
  2. HUMIRA [Suspect]
     Active Substance: ADALIMUMAB
     Dosage: FORM STRENGTH: 40 MILLIGRAM ?CITRATE FREE?FIRST ADMIN DATE: 2024
     Route: 058
  3. LIPITOR [Concomitant]
     Active Substance: ATORVASTATIN CALCIUM
     Indication: Blood cholesterol abnormal
  4. CARVEDILOL [Concomitant]
     Active Substance: CARVEDILOL
     Indication: Blood pressure abnormal
  5. ELIQUIS [Concomitant]
     Active Substance: APIXABAN
     Indication: Cardiac disorder
  6. LOSARTAN [Concomitant]
     Active Substance: LOSARTAN
     Indication: Blood pressure abnormal

REACTIONS (4)
  - Nerve compression [Recovered/Resolved]
  - Spinal stenosis [Recovering/Resolving]
  - Back pain [Recovering/Resolving]
  - Scoliosis [Recovering/Resolving]

NARRATIVE: CASE EVENT DATE: 20211001
